FAERS Safety Report 20340885 (Version 1)
Quarter: 2022Q1

REPORT INFORMATION
  Report Type: Report from Study
  Country: TW (occurrence: TW)
  Receive Date: 20220117
  Receipt Date: 20220117
  Transmission Date: 20220423
  Serious: Yes (Other)
  Sender: FDA-Public Use
  Company Number: TW-PFIZER INC-202200046792

PATIENT

DRUGS (3)
  1. METHOTREXATE [Suspect]
     Active Substance: METHOTREXATE
     Indication: Ocular lymphoma
     Dosage: WEEKLY, INTRAVITREAL
  2. METHOTREXATE [Suspect]
     Active Substance: METHOTREXATE
     Dosage: EVERY 2 WEEKS, INTRAVITREAL
  3. METHOTREXATE [Suspect]
     Active Substance: METHOTREXATE
     Dosage: MONTHLY, INTRAVITREAL

REACTIONS (1)
  - Punctate keratitis [Unknown]
